FAERS Safety Report 9893414 (Version 1)
Quarter: 2014Q1

REPORT INFORMATION
  Report Type: Spontaneous
  Country: NL (occurrence: NL)
  Receive Date: 20140213
  Receipt Date: 20140213
  Transmission Date: 20141002
  Serious: Yes (Hospitalization)
  Sender: FDA-Public Use
  Company Number: NL-PFIZER INC-2014035638

PATIENT
  Age: 17 Year
  Sex: Female

DRUGS (2)
  1. RISPERIDONE [Suspect]
     Indication: AGITATION
     Dosage: 1 MG, 2X/DAY
     Route: 048
  2. HALOPERIDOL [Suspect]
     Indication: AGITATION
     Dosage: 0.2 MG, 3X/DAY
     Route: 048

REACTIONS (4)
  - Sedation [Unknown]
  - Tremor [Unknown]
  - Parkinsonism [Unknown]
  - Drug ineffective [Unknown]
